FAERS Safety Report 8297031-0 (Version None)
Quarter: 2012Q2

REPORT INFORMATION
  Report Type: 
  Country: None (occurrence: None)
  Receive Date: 20120413
  Receipt Date: 20120403
  Transmission Date: 20120825
  Serious: Yes (Hospitalization)
  Sender: FDA-Public Use
  Company Number: 2012000077

PATIENT
  Age: 55 Year
  Sex: Female

DRUGS (16)
  1. ASPIRIN [Concomitant]
  2. PROTELOS (STRONTIUM RANELATE) [Concomitant]
  3. ADALAT [Suspect]
     Indication: PRODUCT USED FOR UNKNOWN INDICATION
     Dosage: 10 MG,QD, ORAL
     Route: 048
     Dates: start: 20111001, end: 20120213
  4. EPINITRIL (GLYCERYL TRINITRATE) [Concomitant]
  5. ACEON [Suspect]
     Indication: PRODUCT USED FOR UNKNOWN INDICATION
     Dosage: 5 MG, QD, ORAL
     Route: 048
     Dates: start: 20100101
  6. PROCORALAN (IVABRADINE HYDROCHLORIDE) [Concomitant]
  7. ZOPICLONE (ZOPICLONE) [Concomitant]
  8. TETRAZEPAM (TETRAZEPAM) [Concomitant]
  9. LASILIX (FUROSEMIDE) [Concomitant]
  10. POTASSIUM CHLORIDE [Concomitant]
  11. EQUANIL [Suspect]
     Indication: PRODUCT USED FOR UNKNOWN INDICATION
     Dosage: ORAL
     Route: 048
     Dates: end: 20120101
  12. CRESTOR [Concomitant]
  13. FIXICAL D3 (CALCIUM CARBONATE, COLECALCIFEROL) [Concomitant]
  14. PREDNISONE TAB [Concomitant]
  15. SPASFON (PHLOROGLUCINOL) [Concomitant]
  16. RABEPRAZOLE SODIUM [Suspect]
     Indication: PRODUCT USED FOR UNKNOWN INDICATION
     Dosage: 20 MG, QD, ORAL
     Route: 048
     Dates: start: 20111201

REACTIONS (3)
  - BONE MARROW FAILURE [None]
  - ACUTE CORONARY SYNDROME [None]
  - ACUTE PULMONARY OEDEMA [None]
